FAERS Safety Report 12449171 (Version 2)
Quarter: 2016Q3

REPORT INFORMATION
  Report Type: Spontaneous
  Country: US (occurrence: US)
  Receive Date: 20160608
  Receipt Date: 20160808
  Transmission Date: 20161109
  Serious: No
  Sender: FDA-Public Use
  Company Number: US-PFIZER INC-2016280408

PATIENT
  Age: 64 Year
  Sex: Female
  Weight: 76 kg

DRUGS (4)
  1. DIOVAN [Concomitant]
     Active Substance: VALSARTAN
     Dosage: 4 MG, 1X/DAY
  2. CLINDAMYCIN PHOSPHATE. [Suspect]
     Active Substance: CLINDAMYCIN PHOSPHATE
     Dosage: SUPPOSED TO USE MORNING AND NIGHT BUT USE ONLY ONCE A DAY
     Route: 061
     Dates: start: 20160417
  3. CLINDAMYCIN PHOSPHATE. [Suspect]
     Active Substance: CLINDAMYCIN PHOSPHATE
     Indication: ROSACEA
     Dosage: UNK (1% 60 ML BOTTLE)
     Route: 061
  4. DIOVAN [Concomitant]
     Active Substance: VALSARTAN
     Indication: HYPERTENSION
     Dosage: 8 MG, UNK

REACTIONS (3)
  - Intentional product misuse [Unknown]
  - Pruritus [Unknown]
  - Drug ineffective for unapproved indication [Unknown]
